FAERS Safety Report 16808253 (Version 1)
Quarter: 2019Q3

REPORT INFORMATION
  Report Type: Report from Study
  Country: NZ (occurrence: NZ)
  Receive Date: 20190916
  Receipt Date: 20190916
  Transmission Date: 20191005
  Serious: Yes (Other)
  Sender: FDA-Public Use
  Company Number: NZ-CELGENEUS-118-C5013-14041324

PATIENT
  Age: 70 Year
  Sex: Male
  Weight: 97.5 kg

DRUGS (9)
  1. CC-5013 [Suspect]
     Active Substance: LENALIDOMIDE
     Indication: CARDIAC FAILURE CONGESTIVE
     Route: 048
     Dates: start: 20121009
  2. CC-5013 [Suspect]
     Active Substance: LENALIDOMIDE
     Indication: NEOPLASM
  3. TAZOCIN [Concomitant]
     Active Substance: PIPERACILLIN SODIUM\TAZOBACTAM SODIUM
     Indication: PRODUCT USED FOR UNKNOWN INDICATION
     Route: 065
  4. CC-5013 [Suspect]
     Active Substance: LENALIDOMIDE
     Indication: PLASMA CELL MYELOMA
     Route: 048
     Dates: end: 20131224
  5. CC-5013 [Suspect]
     Active Substance: LENALIDOMIDE
     Indication: MALIGNANT MELANOMA
  6. CC-5013 [Suspect]
     Active Substance: LENALIDOMIDE
     Indication: GLIOBLASTOMA MULTIFORME
  7. CC-5013 [Suspect]
     Active Substance: LENALIDOMIDE
     Indication: MYELOFIBROSIS
  8. CC-5013 [Suspect]
     Active Substance: LENALIDOMIDE
     Indication: MYELODYSPLASTIC SYNDROME
  9. GENTAMICIN. [Concomitant]
     Active Substance: GENTAMICIN
     Indication: PRODUCT USED FOR UNKNOWN INDICATION
     Route: 065

REACTIONS (1)
  - Diffuse large B-cell lymphoma [Not Recovered/Not Resolved]

NARRATIVE: CASE EVENT DATE: 20140328
